FAERS Safety Report 7326242-3 (Version None)
Quarter: 2011Q1

REPORT INFORMATION
  Report Type: 
  Country: None (occurrence: None)
  Receive Date: 20110302
  Receipt Date: 20110224
  Transmission Date: 20110831
  Serious: Yes (Death, Life-Threatening, Hospitalization, Other)
  Sender: FDA-Public Use
  Company Number: A0915293A

PATIENT
  Age: 73 Year
  Sex: Male

DRUGS (2)
  1. UNKNOWN [Concomitant]
  2. TYKERB [Suspect]
     Dosage: 250MG UNKNOWN
     Route: 048

REACTIONS (3)
  - OFF LABEL USE [None]
  - LUNG CANCER METASTATIC [None]
  - INTERSTITIAL LUNG DISEASE [None]
